FAERS Safety Report 4275480-5 (Version None)
Quarter: 2004Q1

REPORT INFORMATION
  Report Type: 
  Country: None (occurrence: None)
  Receive Date: 20040116
  Receipt Date: 20040108
  Transmission Date: 20041129
  Serious: Yes (Hospitalization)
  Sender: FDA-Public Use
  Company Number: 040001

PATIENT
  Age: 59 Year
  Sex: Male
  Weight: 107.0489 kg

DRUGS (3)
  1. NULYTELY [Suspect]
     Indication: COLONOSCOPY
     Dosage: 4 LITERS PO
     Route: 048
     Dates: start: 20040101
  2. NORVASC [Concomitant]
  3. DIOVAN [Concomitant]

REACTIONS (4)
  - ASTHENIA [None]
  - LOSS OF CONSCIOUSNESS [None]
  - OEDEMA PERIPHERAL [None]
  - PRURITUS [None]
